FAERS Safety Report 9602279 (Version 2)
Quarter: 2013Q4

REPORT INFORMATION
  Report Type: Spontaneous
  Country: JP (occurrence: JP)
  Receive Date: 20131007
  Receipt Date: 20131007
  Transmission Date: 20140711
  Serious: No
  Sender: FDA-Public Use
  Company Number: JP-ELI_LILLY_AND_COMPANY-JP201308001010

PATIENT
  Age: 36 Year
  Sex: Male

DRUGS (3)
  1. ZYPREXA [Suspect]
     Indication: SCHIZOPHRENIA
     Dosage: 10-20 MG
     Route: 048
  2. ZYPREXA [Suspect]
     Dosage: 5 MG, BID
     Route: 048
     Dates: start: 2010
  3. AKINETON                                /AUS/ [Concomitant]

REACTIONS (6)
  - Anal haemorrhage [Unknown]
  - Libido increased [Not Recovered/Not Resolved]
  - Wrong technique in drug usage process [Unknown]
  - Wrong technique in drug usage process [Unknown]
  - Erectile dysfunction [Unknown]
  - Drug ineffective [Unknown]
